FAERS Safety Report 14633576 (Version 6)
Quarter: 2018Q2

REPORT INFORMATION
  Report Type: Report from Study
  Country: CA (occurrence: CA)
  Receive Date: 20180314
  Receipt Date: 20180530
  Transmission Date: 20180711
  Serious: Yes (Hospitalization)
  Sender: FDA-Public Use
  Company Number: CA-ROCHE-2023946

PATIENT
  Age: 34 Year
  Sex: Male

DRUGS (1)
  1. ERIVEDGE [Suspect]
     Active Substance: VISMODEGIB
     Indication: BASAL CELL CARCINOMA
     Route: 048
     Dates: start: 20150603, end: 2018

REACTIONS (10)
  - Influenza like illness [Unknown]
  - Diarrhoea [Unknown]
  - Hypersomnia [Recovering/Resolving]
  - Decreased appetite [Recovered/Resolved]
  - Disorientation [Recovering/Resolving]
  - Ageusia [Recovered/Resolved]
  - Vomiting [Recovering/Resolving]
  - Muscle spasms [Recovered/Resolved]
  - Dehydration [Recovered/Resolved]
  - Dysarthria [Recovering/Resolving]

NARRATIVE: CASE EVENT DATE: 201710
